FAERS Safety Report 25981026 (Version 1)
Quarter: 2025Q4

REPORT INFORMATION
  Report Type: Spontaneous
  Country: AU (occurrence: AU)
  Receive Date: 20251030
  Receipt Date: 20251030
  Transmission Date: 20260117
  Serious: Yes (Other)
  Sender: NOVARTIS
  Company Number: AU-002147023-NVSC2024AU164146

PATIENT
  Age: 56 Year
  Sex: Female

DRUGS (1)
  1. FINGOLIMOD [Suspect]
     Active Substance: FINGOLIMOD
     Indication: Multiple sclerosis
     Dosage: UNK
     Route: 065

REACTIONS (7)
  - Cryptococcal cutaneous infection [Unknown]
  - Rash [Unknown]
  - Skin lesion [Unknown]
  - Scab [Unknown]
  - Lymphopenia [Recovering/Resolving]
  - Cryptococcosis [Unknown]
  - Central nervous system infection [Unknown]
